FAERS Safety Report 18528968 (Version 2)
Quarter: 2020Q4

REPORT INFORMATION
  Report Type: Report from Study
  Country: CA (occurrence: CA)
  Receive Date: 20201120
  Receipt Date: 20201224
  Transmission Date: 20210114
  Serious: Yes (Other)
  Sender: FDA-Public Use
  Company Number: CA-JNJFOC-20201122772

PATIENT
  Age: 62 Year
  Sex: Male
  Weight: 177 kg

DRUGS (2)
  1. STELARA [Suspect]
     Active Substance: USTEKINUMAB
     Indication: COLITIS ULCERATIVE
     Route: 058
     Dates: start: 20200922
  2. STELARA [Suspect]
     Active Substance: USTEKINUMAB

REACTIONS (9)
  - Haematochezia [Recovering/Resolving]
  - Diarrhoea [Unknown]
  - Frequent bowel movements [Recovering/Resolving]
  - Abdominal pain [Unknown]
  - Anal incontinence [Unknown]
  - Impaired quality of life [Unknown]
  - General physical health deterioration [Recovering/Resolving]
  - Off label use [Unknown]
  - Product use issue [Unknown]

NARRATIVE: CASE EVENT DATE: 2020
